FAERS Safety Report 24214170 (Version 1)
Quarter: 2024Q3

REPORT INFORMATION
  Report Type: Spontaneous
  Country: US (occurrence: None)
  Receive Date: 20240815
  Receipt Date: 20240815
  Transmission Date: 20241017
  Serious: No
  Sender: ASTRAZENECA
  Company Number: 2024A150182

PATIENT
  Sex: Female

DRUGS (1)
  1. TRUQAP [Suspect]
     Active Substance: CAPIVASERTIB
     Route: 048

REACTIONS (2)
  - Blood creatinine increased [Unknown]
  - Diarrhoea [Unknown]
